FAERS Safety Report 15889385 (Version 1)
Quarter: 2019Q1

REPORT INFORMATION
  Report Type: Spontaneous
  Country: US (occurrence: US)
  Receive Date: 20190130
  Receipt Date: 20190130
  Transmission Date: 20190417
  Serious: Yes (Other)
  Sender: FDA-Public Use
  Company Number: None

PATIENT
  Age: 53 Year
  Sex: Female
  Weight: 56.25 kg

DRUGS (7)
  1. NORTRIPTYLINE [Concomitant]
     Active Substance: NORTRIPTYLINE
  2. VITAMIN D [Concomitant]
     Active Substance: CHOLECALCIFEROL
  3. IRON [Concomitant]
     Active Substance: IRON
  4. AIMOVIG [Suspect]
     Active Substance: ERENUMAB-AOOE
     Indication: MIGRAINE
     Dosage: ?          QUANTITY:2 INJECTIONS;OTHER FREQUENCY:28-30 DAYS;?
     Route: 030
  5. ZONISAMIDE. [Concomitant]
     Active Substance: ZONISAMIDE
  6. MULTI VITAMIN [Concomitant]
     Active Substance: VITAMINS
  7. PROPRANOLOL [Concomitant]
     Active Substance: PROPRANOLOL HYDROCHLORIDE

REACTIONS (1)
  - Injection site urticaria [None]

NARRATIVE: CASE EVENT DATE: 20180906
